FAERS Safety Report 11755006 (Version 2)
Quarter: 2016Q1

REPORT INFORMATION
  Report Type: Other
  Country: FR (occurrence: FR)
  Receive Date: 20151119
  Receipt Date: 20160315
  Transmission Date: 20160525
  Serious: Yes (Hospitalization, Other)
  Sender: FDA-Public Use
  Company Number: FR-APOTEX-2015AP014710

PATIENT
  Age: 40 Year
  Sex: Female

DRUGS (9)
  1. SERESTA EXPIDET [Suspect]
     Active Substance: OXAZEPAM
     Indication: DEPRESSION
     Dosage: 30 MG, TID
     Route: 048
     Dates: start: 201505, end: 20150811
  2. MAXILASE [Concomitant]
     Active Substance: PANCRELIPASE
     Indication: OROPHARYNGEAL PAIN
  3. PAXIL [Suspect]
     Active Substance: PAROXETINE HYDROCHLORIDE
     Indication: DEPRESSION
     Dosage: 20 MG, QD
     Route: 048
     Dates: start: 201408, end: 20150811
  4. STREPSILS                          /00048001/ [Concomitant]
     Indication: NASOPHARYNGITIS
     Route: 065
  5. IMOVANE [Suspect]
     Active Substance: ZOPICLONE
     Indication: PRODUCT USED FOR UNKNOWN INDICATION
     Dosage: 7.5 MG, QD
     Route: 048
     Dates: end: 201508
  6. NUROFEN                            /00109201/ [Suspect]
     Active Substance: IBUPROFEN
     Indication: MYALGIA
     Dosage: 400 MG, TID
     Route: 048
     Dates: start: 201507, end: 201507
  7. MAXILASE [Concomitant]
     Active Substance: PANCRELIPASE
     Indication: NASOPHARYNGITIS
     Dosage: UNK
     Route: 065
     Dates: start: 2015, end: 2015
  8. SERESTA EXPIDET [Suspect]
     Active Substance: OXAZEPAM
     Dosage: 1 DF, QD
     Route: 065
     Dates: start: 20150814, end: 20150821
  9. STREPSILS                          /00048001/ [Concomitant]
     Indication: OROPHARYNGEAL PAIN

REACTIONS (2)
  - Hepatitis cholestatic [Not Recovered/Not Resolved]
  - Jaundice [Recovering/Resolving]

NARRATIVE: CASE EVENT DATE: 201508
